FAERS Safety Report 15403077 (Version 1)
Quarter: 2018Q3

REPORT INFORMATION
  Report Type: Report from Study
  Country: GB (occurrence: GB)
  Receive Date: 20180919
  Receipt Date: 20180919
  Transmission Date: 20181010
  Serious: Yes (Other)
  Sender: FDA-Public Use
  Company Number: PHHY2018GB095412

PATIENT
  Sex: Female

DRUGS (1)
  1. COSENTYX [Suspect]
     Active Substance: SECUKINUMAB
     Indication: ANKYLOSING SPONDYLITIS
     Dosage: 150 MG, QMO
     Route: 058
     Dates: start: 20180223

REACTIONS (6)
  - Peripheral swelling [Unknown]
  - Body temperature increased [Unknown]
  - Arthropod bite [Unknown]
  - Pain [Unknown]
  - Erythema [Unknown]
  - Cellulitis [Unknown]
